FAERS Safety Report 9162722 (Version 2)
Quarter: 2013Q1

REPORT INFORMATION
  Report Type: Spontaneous
  Country: US (occurrence: US)
  Receive Date: 20130314
  Receipt Date: 20130320
  Transmission Date: 20140127
  Serious: Yes (Other)
  Sender: FDA-Public Use
  Company Number: PHEH2013US004802

PATIENT
  Age: 42 Year
  Sex: Female

DRUGS (5)
  1. AFINITOR [Suspect]
     Dosage: 10 MG, QD
     Route: 048
     Dates: start: 20130222
  2. TRUVADA [Concomitant]
  3. PREZISTA [Concomitant]
  4. CEROVITE [Concomitant]
  5. NORVIR [Concomitant]

REACTIONS (9)
  - Pharyngeal haemorrhage [Not Recovered/Not Resolved]
  - Epistaxis [Not Recovered/Not Resolved]
  - Back pain [Unknown]
  - Nervousness [Unknown]
  - Mass [Not Recovered/Not Resolved]
  - Abdominal pain [Unknown]
  - Nausea [Unknown]
  - Vomiting [Unknown]
  - Urinary tract infection [Unknown]
